FAERS Safety Report 13272587 (Version 6)
Quarter: 2017Q2

REPORT INFORMATION
  Report Type: Spontaneous
  Country: US (occurrence: US)
  Receive Date: 20170227
  Receipt Date: 20170626
  Transmission Date: 20170830
  Serious: Yes (Hospitalization)
  Sender: FDA-Public Use
  Company Number: US-PFIZER INC-2017078666

PATIENT
  Age: 74 Year
  Sex: Male
  Weight: 108 kg

DRUGS (11)
  1. LOSARTAN. [Concomitant]
     Active Substance: LOSARTAN
     Indication: HYPERTENSION
     Dosage: 50 MG, 1X/DAY (10-15 YEARS)
     Dates: start: 2012
  2. FAMOTIDINE. [Concomitant]
     Active Substance: FAMOTIDINE
     Indication: DYSPEPSIA
     Dosage: 40 MG, 2X/DAY (10 YEARS)
     Dates: start: 2012
  3. SUTENT [Suspect]
     Active Substance: SUNITINIB MALATE
     Dosage: 37.5 MG, CYCLIC (ONCE A DAY 28 DAYS)
     Dates: start: 20161031
  4. SUTENT [Suspect]
     Active Substance: SUNITINIB MALATE
     Dosage: 50 MG, ONCE A DAY
     Dates: start: 20161101
  5. SUTENT [Suspect]
     Active Substance: SUNITINIB MALATE
     Dosage: 37.5 MG, CYCLIC, (2 WEEKS ON, 1 WEEK OFF)
     Dates: start: 20170417
  6. TERAZOSIN [Concomitant]
     Active Substance: TERAZOSIN\TERAZOSIN HYDROCHLORIDE
     Indication: BLOOD PRESSURE ABNORMAL
     Dosage: 5 MG, 1X/DAY; AT BEDTIME (10 YEARS)
     Dates: start: 2012
  7. SUTENT [Suspect]
     Active Substance: SUNITINIB MALATE
     Indication: METASTATIC RENAL CELL CARCINOMA
     Dosage: 50 MG, CYCLIC, (DAILY X 4 WKS, 2 WEEKS OFF)
     Route: 048
     Dates: start: 20161019, end: 20170228
  8. SUTENT [Suspect]
     Active Substance: SUNITINIB MALATE
     Dosage: UNK
  9. SUTENT [Suspect]
     Active Substance: SUNITINIB MALATE
     Dosage: 50 MG, CYCLIC (DAILY, 4 WEEKS ON, 2 WEEKS OFF)
     Dates: start: 20161101
  10. LEVOTHYROXINE. [Concomitant]
     Active Substance: LEVOTHYROXINE
     Dosage: 25 UG, UNK
     Dates: start: 2017
  11. TERAZOSIN [Concomitant]
     Active Substance: TERAZOSIN\TERAZOSIN HYDROCHLORIDE
     Indication: DYSURIA

REACTIONS (9)
  - Feeding disorder [Not Recovered/Not Resolved]
  - Drug effect variable [Recovered/Resolved]
  - Depression [Recovered/Resolved]
  - Rash [Recovered/Resolved]
  - Nausea [Recovered/Resolved]
  - Decreased appetite [Not Recovered/Not Resolved]
  - Lip blister [Recovered/Resolved]
  - Oral mucosal blistering [Recovered/Resolved]
  - Stomatitis [Recovered/Resolved]

NARRATIVE: CASE EVENT DATE: 20161031
